FAERS Safety Report 21684008 (Version 2)
Quarter: 2022Q4

REPORT INFORMATION
  Report Type: Spontaneous
  Country: US (occurrence: US)
  Receive Date: 20221205
  Receipt Date: 20221207
  Transmission Date: 20230113
  Serious: Yes (Hospitalization)
  Sender: FDA-Public Use
  Company Number: US-TAKEDA-2022TUS093629

PATIENT
  Age: 22 Year
  Sex: Female

DRUGS (1)
  1. LANADELUMAB [Suspect]
     Active Substance: LANADELUMAB
     Indication: Hereditary angioedema with normal C1 esterase inhibitor
     Dosage: 300 MILLIGRAM, Q2WEEKS
     Route: 058

REACTIONS (1)
  - Hereditary angioedema [Not Recovered/Not Resolved]
